FAERS Safety Report 6838685-2 (Version None)
Quarter: 2010Q3

REPORT INFORMATION
  Report Type: 
  Country: None (occurrence: None)
  Receive Date: 20100713
  Receipt Date: 20070619
  Transmission Date: 20110219
  Serious: No
  Sender: FDA-Public Use
  Company Number: US-PFIZER INC-2007050813

PATIENT
  Sex: Male

DRUGS (1)
  1. CHANTIX [Suspect]

REACTIONS (7)
  - ABDOMINAL PAIN UPPER [None]
  - CHEST DISCOMFORT [None]
  - CHEST PAIN [None]
  - FLATULENCE [None]
  - MALAISE [None]
  - RENAL PAIN [None]
  - VOMITING [None]
